FAERS Safety Report 10629555 (Version 1)
Quarter: 2014Q4

REPORT INFORMATION
  Report Type: Spontaneous
  Country: US (occurrence: US)
  Receive Date: 20141205
  Receipt Date: 20141205
  Transmission Date: 20150529
  Serious: No
  Sender: FDA-Public Use
  Company Number: US-BRISTOL-MYERS SQUIBB COMPANY-21378955

PATIENT
  Age: 64 Year
  Sex: Male
  Weight: 83.9 kg

DRUGS (5)
  1. BARACLUDE [Suspect]
     Active Substance: ENTECAVIR
     Indication: HEPATITIS B
  2. GLUCOSAMINE [Concomitant]
     Active Substance: GLUCOSAMINE
  3. MULTIVITAMIN [Concomitant]
     Active Substance: VITAMINS
  4. DUEXIS [Concomitant]
     Active Substance: FAMOTIDINE\IBUPROFEN
  5. PREDNISONE. [Concomitant]
     Active Substance: PREDNISONE

REACTIONS (8)
  - Arthritis [Unknown]
  - Somnolence [Unknown]
  - Headache [Unknown]
  - Chest pain [Recovered/Resolved]
  - Dizziness [Unknown]
  - Dyspepsia [Unknown]
  - Chest discomfort [Unknown]
  - Palpitations [Unknown]
